FAERS Safety Report 20543938 (Version 2)
Quarter: 2022Q2

REPORT INFORMATION
  Report Type: Spontaneous
  Country: US (occurrence: US)
  Receive Date: 20220303
  Receipt Date: 20220513
  Transmission Date: 20220721
  Serious: Yes (Other)
  Sender: FDA-Public Use
  Company Number: US-JNJFOC-20220259216

PATIENT
  Age: 5 Decade
  Sex: Female

DRUGS (9)
  1. ELMIRON [Suspect]
     Active Substance: PENTOSAN POLYSULFATE SODIUM
     Indication: Cystitis interstitial
     Route: 048
     Dates: start: 2006, end: 2019
  2. IBUPROFEN [Concomitant]
     Active Substance: IBUPROFEN
     Indication: Complex regional pain syndrome
     Dates: start: 20071101
  3. IBUPROFEN [Concomitant]
     Active Substance: IBUPROFEN
     Indication: Back pain
  4. IBUPROFEN [Concomitant]
     Active Substance: IBUPROFEN
     Indication: Post laminectomy syndrome
  5. IBUPROFEN [Concomitant]
     Active Substance: IBUPROFEN
     Indication: Muscle spasms
  6. TIZANIDINE [Concomitant]
     Active Substance: TIZANIDINE
     Indication: Complex regional pain syndrome
     Dates: start: 20071101
  7. TIZANIDINE [Concomitant]
     Active Substance: TIZANIDINE
     Indication: Back pain
  8. TIZANIDINE [Concomitant]
     Active Substance: TIZANIDINE
     Indication: Post laminectomy syndrome
  9. TIZANIDINE [Concomitant]
     Active Substance: TIZANIDINE
     Indication: Muscle spasms

REACTIONS (4)
  - Vision blurred [Unknown]
  - Night blindness [Unknown]
  - Visual impairment [Unknown]
  - Asthenopia [Unknown]

NARRATIVE: CASE EVENT DATE: 20100101
